FAERS Safety Report 5718077-X (Version None)
Quarter: 2008Q2

REPORT INFORMATION
  Report Type: 
  Country: None (occurrence: None)
  Receive Date: 20080425
  Receipt Date: 20080418
  Transmission Date: 20081010
  Serious: Yes (Hospitalization, Disabling, Other)
  Sender: FDA-Public Use
  Company Number: US-MERCK-0804USA01086

PATIENT
  Age: 11 Year
  Sex: Male

DRUGS (5)
  1. SINGULAIR [Suspect]
     Indication: ASTHMA
     Route: 048
     Dates: start: 20041001, end: 20050701
  2. SINGULAIR [Suspect]
     Route: 048
     Dates: start: 20050701, end: 20050701
  3. SINGULAIR [Suspect]
     Route: 048
     Dates: start: 20050701, end: 20080328
  4. ZYRTEC [Concomitant]
     Indication: RHINITIS ALLERGIC
     Route: 048
  5. CORTICOSTEROIDS (UNSPECIFIED) [Concomitant]
     Dates: end: 20060621

REACTIONS (6)
  - ANXIETY [None]
  - ASTHMA [None]
  - DEPRESSION [None]
  - INSOMNIA [None]
  - SLEEP DISORDER [None]
  - SUICIDAL IDEATION [None]
